FAERS Safety Report 23060168 (Version 1)
Quarter: 2023Q4

REPORT INFORMATION
  Report Type: Spontaneous
  Country: US (occurrence: None)
  Receive Date: 20231012
  Receipt Date: 20231012
  Transmission Date: 20240110
  Serious: Yes (Disabling, Congenital Anomaly)
  Sender: FDA-Public Use
  Company Number: None

PATIENT
  Age: 28 Year
  Sex: Female
  Weight: 54 kg

DRUGS (2)
  1. BONJESTA [Suspect]
     Active Substance: DOXYLAMINE SUCCINATE\PYRIDOXINE HYDROCHLORIDE
     Indication: Morning sickness
     Dates: start: 20230228, end: 20230801
  2. Prenatal supplement [Concomitant]

REACTIONS (4)
  - Maternal exposure during pregnancy [None]
  - Maternal drugs affecting foetus [None]
  - Polydactyly [None]
  - Unevaluable event [None]

NARRATIVE: CASE EVENT DATE: 20231011
